FAERS Safety Report 19370870 (Version 1)
Quarter: 2021Q2

REPORT INFORMATION
  Report Type: Spontaneous
  Country: NL (occurrence: NL)
  Receive Date: 20210603
  Receipt Date: 20210603
  Transmission Date: 20210717
  Serious: Yes (Hospitalization, Other)
  Sender: FDA-Public Use
  Company Number: NL-AMGEN-NLDSP2020150916

PATIENT

DRUGS (11)
  1. ETANERCEPT [Suspect]
     Active Substance: ETANERCEPT
     Indication: RHEUMATIC DISORDER
     Dosage: UNK
     Route: 065
  2. HYDROXYCHLOROQUINE [Concomitant]
     Active Substance: HYDROXYCHLOROQUINE
     Dosage: UNK
  3. METHOTREXATE. [Concomitant]
     Active Substance: METHOTREXATE
     Dosage: UNK
  4. PREDNISOLONE. [Concomitant]
     Active Substance: PREDNISOLONE
  5. ETANERCEPT [Suspect]
     Active Substance: ETANERCEPT
     Indication: AXIAL SPONDYLOARTHRITIS
  6. TRIAMCINOLONACETONIDE [Concomitant]
     Active Substance: TRIAMCINOLONE ACETONIDE
     Dosage: UNK
  7. ETANERCEPT [Suspect]
     Active Substance: ETANERCEPT
     Indication: RHEUMATOID ARTHRITIS
  8. ETANERCEPT [Suspect]
     Active Substance: ETANERCEPT
     Indication: PSORIATIC ARTHROPATHY
  9. SULFASALAZINE. [Concomitant]
     Active Substance: SULFASALAZINE
     Dosage: UNK
  10. ADALIMUMAB [Suspect]
     Active Substance: ADALIMUMAB
     Indication: RHEUMATIC DISORDER
     Dosage: UNK
     Route: 065
  11. LEFLUNOMIDE. [Concomitant]
     Active Substance: LEFLUNOMIDE
     Dosage: UNK

REACTIONS (27)
  - Crohn^s disease [Unknown]
  - Stomatitis [Unknown]
  - Oral blood blister [Unknown]
  - Nausea [Unknown]
  - Oral pain [Unknown]
  - Tooth disorder [Unknown]
  - Aphthous ulcer [Unknown]
  - Enteritis [Unknown]
  - Abdominal discomfort [Unknown]
  - Glossodynia [Unknown]
  - Rectal spasm [Unknown]
  - Rectal haemorrhage [Unknown]
  - Chest pain [Unknown]
  - Abdominal pain [Unknown]
  - Diarrhoea [Unknown]
  - Gastrointestinal pain [Unknown]
  - Constipation [Unknown]
  - Abdominal distension [Unknown]
  - Breath odour [Unknown]
  - Rheumatic disorder [Unknown]
  - Vomiting [Unknown]
  - Angina bullosa haemorrhagica [Unknown]
  - Oesophageal disorder [Unknown]
  - Flatulence [Unknown]
  - Anal haemorrhage [Unknown]
  - Dry mouth [Unknown]
  - Anal pruritus [Unknown]
